FAERS Safety Report 4420095-9 (Version None)
Quarter: 2004Q3

REPORT INFORMATION
  Report Type: 
  Country: None (occurrence: None)
  Receive Date: 20040806
  Receipt Date: 20040806
  Transmission Date: 20050211
  Serious: Yes (Other)
  Sender: FDA-Public Use
  Company Number: None

PATIENT
  Age: 62 Year
  Sex: Male
  Weight: 87.9 kg

DRUGS (11)
  1. ENOXAPARIN SODIUM [Suspect]
     Dosage: 100 MG, Q 12 H , SQ
     Route: 058
     Dates: start: 20040607, end: 20040611
  2. WARFARIN SODIUM [Suspect]
     Dosage: 7.5 MG QD PO
     Route: 048
     Dates: start: 20040430, end: 20040611
  3. FERROUS SULFATE TAB [Concomitant]
  4. DOCUSATE SODIUM (COLACE) [Concomitant]
  5. FOSINOPRIL SODIUM [Concomitant]
  6. FUROSEMIDE [Concomitant]
  7. FINASTERIDE [Concomitant]
  8. OMEPRAZOLE (PRILOSEC FOR INPATIENT USE) [Concomitant]
  9. DILTIAZEM [Concomitant]
  10. IPRATROPIUM (ATROVENT) [Concomitant]
  11. FLUTICASONE/SALMETEROL POWER INHL [Concomitant]

REACTIONS (4)
  - ABDOMINAL PAIN [None]
  - DISCOMFORT [None]
  - HYPOTENSION [None]
  - PERITONEAL HAEMORRHAGE [None]
